FAERS Safety Report 23053807 (Version 2)
Quarter: 2024Q1

REPORT INFORMATION
  Report Type: Spontaneous
  Country: SK (occurrence: SK)
  Receive Date: 20231011
  Receipt Date: 20240112
  Transmission Date: 20240410
  Serious: Yes (Other)
  Sender: FDA-Public Use
  Company Number: None

PATIENT
  Age: 20 Year
  Sex: Female

DRUGS (12)
  1. LACOSAMIDE [Suspect]
     Active Substance: LACOSAMIDE
     Indication: Partial seizures
     Dosage: UNK
  2. LEVETIRACETAM [Suspect]
     Active Substance: LEVETIRACETAM
     Indication: Partial seizures
     Dosage: UNK
  3. LAMOTRIGINE [Interacting]
     Active Substance: LAMOTRIGINE
     Indication: Partial seizures
     Dosage: 2X200 MG/DAY
  4. ZONISAMIDE [Suspect]
     Active Substance: ZONISAMIDE
     Indication: Partial seizures
     Dosage: UNK
  5. CENOBAMATE [Interacting]
     Active Substance: CENOBAMATE
     Indication: Mixed anxiety and depressive disorder
     Dosage: 200 MILLIGRAM
  6. CENOBAMATE [Interacting]
     Active Substance: CENOBAMATE
     Indication: Partial seizures
     Dosage: 150 MILLIGRAM,DAILY
  7. CENOBAMATE [Interacting]
     Active Substance: CENOBAMATE
     Dosage: 100 MILLIGRAM, DAILY
  8. CENOBAMATE [Interacting]
     Active Substance: CENOBAMATE
     Dosage: 200 MILLIGRAM, ONCE DAILY (QD)
  9. CENOBAMATE [Interacting]
     Active Substance: CENOBAMATE
     Dosage: UNK
     Dates: start: 202208
  10. CENOBAMATE [Interacting]
     Active Substance: CENOBAMATE
     Dosage: 150 MILLIGRAM, ONCE DAILY (QD)
  11. ESCITALOPRAM [Concomitant]
     Active Substance: ESCITALOPRAM OXALATE
     Indication: Mixed anxiety and depressive disorder
     Dosage: UNK
  12. ESCITALOPRAM [Concomitant]
     Active Substance: ESCITALOPRAM OXALATE
     Indication: Mixed anxiety and depressive disorder

REACTIONS (8)
  - Depression suicidal [Recovered/Resolved]
  - Drug level decreased [Unknown]
  - Drug interaction [Unknown]
  - Seizure [Recovered/Resolved]
  - Suicidal ideation [Unknown]
  - Therapeutic product effect incomplete [Unknown]
  - Depression [Unknown]
  - Drug ineffective [Unknown]
